FAERS Safety Report 7260166-5 (Version None)
Quarter: 2011Q1

REPORT INFORMATION
  Report Type: 
  Country: None (occurrence: None)
  Receive Date: 20110130
  Receipt Date: 20101018
  Transmission Date: 20110831
  Serious: No
  Sender: FDA-Public Use
  Company Number: US-ABBOTT-10P-163-0679307-00

PATIENT
  Age: 43 Year
  Sex: Male

DRUGS (4)
  1. LISINOPRIL [Concomitant]
     Indication: BLOOD PRESSURE INCREASED
  2. DARVOT [Concomitant]
     Indication: PAIN
     Dosage: 100/650 AS NEEDED
  3. BC HEADACHE POWER [Concomitant]
     Indication: PAIN
  4. HUMIRA [Suspect]
     Indication: PSORIATIC ARTHROPATHY
     Dates: start: 20100601

REACTIONS (3)
  - DIARRHOEA [None]
  - PAIN [None]
  - NAUSEA [None]
